FAERS Safety Report 8798101 (Version 1)
Quarter: 2012Q4

REPORT INFORMATION
  Report Type: 
  Country: US (occurrence: US)
  Receive Date: 20120920
  Receipt Date: 20120920
  Transmission Date: 20130627
  Serious: No
  Sender: FDA-Public Use
  Company Number: US-009507513-1208USA007697

PATIENT
  Sex: Male

DRUGS (4)
  1. PEG-INTRON [Suspect]
     Indication: HEPATITIS C
     Dosage: UNK; Redipen
     Dates: start: 20120810
  2. REBETOL [Suspect]
     Indication: HEPATITIS C
     Dosage: UNK
     Dates: start: 20120810
  3. SEROQUEL [Concomitant]
     Indication: BIPOLAR DISORDER
  4. ATIVAN [Concomitant]
     Indication: BIPOLAR DISORDER

REACTIONS (1)
  - Injection site reaction [Unknown]
